FAERS Safety Report 18366474 (Version 4)
Quarter: 2021Q1

REPORT INFORMATION
  Report Type: Spontaneous
  Country: PL (occurrence: PL)
  Receive Date: 20201009
  Receipt Date: 20210105
  Transmission Date: 20210419
  Serious: Yes (Other)
  Sender: FDA-Public Use
  Company Number: PL-PFIZER INC-2020386235

PATIENT
  Age: 70 Year
  Weight: 75 kg

DRUGS (1)
  1. SOLU?MEDROL [Suspect]
     Active Substance: METHYLPREDNISOLONE SODIUM SUCCINATE
     Indication: OPTIC NERVE DISORDER
     Dosage: 250 MG
     Route: 042
     Dates: start: 20180413, end: 20180413

REACTIONS (5)
  - Chest discomfort [Unknown]
  - Hypertension [Unknown]
  - Headache [Unknown]
  - Heart rate increased [Unknown]
  - Asthenia [Unknown]

NARRATIVE: CASE EVENT DATE: 20180414
